FAERS Safety Report 20204106 (Version 1)
Quarter: 2021Q4

REPORT INFORMATION
  Report Type: Spontaneous
  Country: US (occurrence: US)
  Receive Date: 20211220
  Receipt Date: 20211220
  Transmission Date: 20220303
  Serious: Yes (Death, Other)
  Sender: FDA-Public Use
  Company Number: US-009507513-2112USA006026

PATIENT
  Age: 70 Year
  Sex: Male

DRUGS (4)
  1. PRINIVIL [Suspect]
     Active Substance: LISINOPRIL
     Dosage: INGESTION(INGST)+PARENTERAL(PAR)
  2. QUETIAPINE [Suspect]
     Active Substance: QUETIAPINE
     Dosage: INGESTION(INGST)+PARENTERAL(PAR)
  3. METOPROLOL [Suspect]
     Active Substance: METOPROLOL
     Dosage: INGESTION(INGST)+PARENTERAL(PAR)
  4. INSULIN NOS [Suspect]
     Active Substance: INSULIN NOS
     Dosage: ROUTE:INGESTION(INGST)+PARENTERAL(PAR)

REACTIONS (1)
  - Suspected suicide [Fatal]
